FAERS Safety Report 18037809 (Version 1)
Quarter: 2020Q3

REPORT INFORMATION
  Report Type: Report from Study
  Country: JP (occurrence: JP)
  Receive Date: 20200717
  Receipt Date: 20200717
  Transmission Date: 20201103
  Serious: Yes (Other)
  Sender: FDA-Public Use
  Company Number: JP-PFIZER INC-2020269165

PATIENT
  Age: 90 Year
  Sex: Female

DRUGS (3)
  1. TRIAZOLAM. [Suspect]
     Active Substance: TRIAZOLAM
     Indication: POOR QUALITY SLEEP
     Dosage: UNK
  2. RAMELTEON [Concomitant]
     Active Substance: RAMELTEON
     Indication: POOR QUALITY SLEEP
     Dosage: UNK
  3. ZOLPIDEM TARTRATE. [Suspect]
     Active Substance: ZOLPIDEM TARTRATE
     Indication: POOR QUALITY SLEEP
     Dosage: 2.5 MG

REACTIONS (1)
  - Delirium [Unknown]
